FAERS Safety Report 8508268-7 (Version None)
Quarter: 2012Q3

REPORT INFORMATION
  Report Type: 
  Country: None (occurrence: None)
  Receive Date: 20120713
  Receipt Date: 20120703
  Transmission Date: 20120928
  Serious: Yes (Other)
  Sender: FDA-Public Use
  Company Number: US-ABBOTT-12P-163-0953161-00

PATIENT
  Sex: Male

DRUGS (2)
  1. HUMIRA [Suspect]
     Indication: PSORIASIS
     Dosage: STOPPED IT FOR SURGERY
     Route: 058
     Dates: start: 20071101, end: 20120101
  2. HUMIRA [Suspect]
     Dates: start: 20120101

REACTIONS (3)
  - OSTEOARTHRITIS [None]
  - INJECTION SITE PAIN [None]
  - MENISCUS LESION [None]
